FAERS Safety Report 17267422 (Version 1)
Quarter: 2019Q4

REPORT INFORMATION
  Report Type: Spontaneous
  Country: US (occurrence: US)
  Receive Date: 20191220
  Receipt Date: 20191220
  Transmission Date: 20200122
  Serious: No
  Sender: FDA-Public Use
  Company Number: None

PATIENT
  Age: 55 Year
  Sex: Male
  Weight: 117.93 kg

DRUGS (1)
  1. LIRAGLUTIDE (LIRAGLUTIDE (VICTOZA) 6MG/ML INJ, SOLN, PEN, 3ML [Suspect]
     Active Substance: LIRAGLUTIDE
     Indication: DIABETES MELLITUS
     Dosage: ?          OTHER DOSE:1.2MG;?
     Route: 058
     Dates: start: 20190604, end: 20191007

REACTIONS (4)
  - Weight decreased [None]
  - Abdominal pain lower [None]
  - Pancreatitis [None]
  - Change of bowel habit [None]

NARRATIVE: CASE EVENT DATE: 20191007
